FAERS Safety Report 7874767-4 (Version None)
Quarter: 2011Q4

REPORT INFORMATION
  Report Type: 
  Country: None (occurrence: None)
  Receive Date: 20111031
  Receipt Date: 20111018
  Transmission Date: 20120403
  Serious: Yes (Other)
  Sender: FDA-Public Use
  Company Number: US-ELI_LILLY_AND_COMPANY-US201110005262

PATIENT
  Sex: Male

DRUGS (3)
  1. LANTUS [Concomitant]
  2. BYETTA [Suspect]
  3. NOVOLOG [Concomitant]

REACTIONS (4)
  - MALAISE [None]
  - CEREBROVASCULAR ACCIDENT [None]
  - OFF LABEL USE [None]
  - BLOOD GLUCOSE INCREASED [None]
